FAERS Safety Report 9395003 (Version 2)
Quarter: 2013Q3

REPORT INFORMATION
  Report Type: Spontaneous
  Country: FR (occurrence: FR)
  Receive Date: 20130711
  Receipt Date: 20130717
  Transmission Date: 20140515
  Serious: Yes (Other)
  Sender: FDA-Public Use
  Company Number: FR-PFIZER INC-2013199714

PATIENT
  Age: 80 Year
  Sex: 0

DRUGS (7)
  1. NEURONTIN [Suspect]
     Dosage: 900 MG, DAILY
     Route: 048
  2. OXALIPLATIN [Suspect]
     Indication: B-CELL LYMPHOMA
     Dosage: 115 MG, 1X/DAY
     Route: 042
     Dates: start: 20130523
  3. OMEPRAZOLE [Suspect]
     Dosage: 20 MG, 1X/DAY
     Route: 048
  4. GEMCITABINE HYDROCHLORIDE [Suspect]
     Dosage: 1140 MG, 1X/DAY
     Route: 042
     Dates: start: 20130523
  5. MABTHERA [Suspect]
     Indication: B-CELL LYMPHOMA
     Dosage: 610 MG, 1X/DAY
     Route: 042
     Dates: start: 200812, end: 20130524
  6. SOLUPRED [Suspect]
     Dosage: 8 DAILY DF
     Route: 048
  7. COAPROVEL [Suspect]
     Indication: HYPERTENSION
     Dosage: 1 DF, 1X/DAY
     Route: 048

REACTIONS (1)
  - Anaphylactoid reaction [Recovered/Resolved]
